FAERS Safety Report 13345523 (Version 1)
Quarter: 2017Q1

REPORT INFORMATION
  Report Type: Spontaneous
  Country: JP (occurrence: JP)
  Receive Date: 20170317
  Receipt Date: 20170317
  Transmission Date: 20170428
  Serious: Yes (Other)
  Sender: FDA-Public Use
  Company Number: JP-009507513-1703JPN001296J

PATIENT
  Age: 78 Year
  Sex: Male

DRUGS (1)
  1. BRIDION [Suspect]
     Active Substance: SUGAMMADEX
     Indication: NEUROMUSCULAR BLOCKADE REVERSAL
     Dosage: 160 MG, ONCE
     Route: 042
     Dates: start: 20170313, end: 20170313

REACTIONS (1)
  - Tracheal stenosis [Recovered/Resolved]

NARRATIVE: CASE EVENT DATE: 20170313
